FAERS Safety Report 15577153 (Version 1)
Quarter: 2018Q4

REPORT INFORMATION
  Report Type: Spontaneous
  Country: UY (occurrence: UY)
  Receive Date: 20181102
  Receipt Date: 20181102
  Transmission Date: 20190205
  Serious: Yes (Hospitalization, Other)
  Sender: FDA-Public Use
  Company Number: UY-IPCA LABORATORIES LIMITED-IPC-2018-UY-002211

PATIENT

DRUGS (1)
  1. FUROSEMIDE. [Suspect]
     Active Substance: FUROSEMIDE
     Indication: PRODUCT USED FOR UNKNOWN INDICATION
     Dosage: 40 MG, BID
     Route: 048

REACTIONS (3)
  - Dehydration [Recovered/Resolved]
  - Hepatitis [Recovered/Resolved]
  - Prerenal failure [Recovered/Resolved]
